FAERS Safety Report 5388100-3 (Version None)
Quarter: 2007Q3

REPORT INFORMATION
  Report Type: 
  Country: None (occurrence: None)
  Receive Date: 20070716
  Receipt Date: 20061117
  Transmission Date: 20080115
  Serious: No
  Sender: FDA-Public Use
  Company Number: A0627772A

PATIENT
  Age: 34 Year
  Sex: Female

DRUGS (1)
  1. TARGET NICOTINE GUM 4MG, MINT [Suspect]
     Dates: start: 20061112

REACTIONS (5)
  - DYSPEPSIA [None]
  - INTENTIONAL DRUG MISUSE [None]
  - MALAISE [None]
  - NAUSEA [None]
  - VOMITING [None]
